FAERS Safety Report 24463885 (Version 5)
Quarter: 2024Q4

REPORT INFORMATION
  Report Type: Report from Study
  Country: US (occurrence: US)
  Receive Date: 20241018
  Receipt Date: 20241224
  Transmission Date: 20250114
  Serious: Yes (Other)
  Sender: NOVARTIS
  Company Number: US-002147023-NVSC2024US174020

PATIENT
  Age: 61 Year
  Sex: Female
  Weight: 70.299 kg

DRUGS (44)
  1. LAMPRENE [Suspect]
     Active Substance: CLOFAZIMINE
     Indication: Mycobacterium abscessus infection
     Dosage: 100 MG, QD
     Route: 048
     Dates: start: 20240729
  2. LAMPRENE [Suspect]
     Active Substance: CLOFAZIMINE
     Dosage: 100 MG, QD
     Route: 048
     Dates: start: 202408
  3. LAMPRENE [Suspect]
     Active Substance: CLOFAZIMINE
     Dosage: 100 MG, QD
     Route: 048
     Dates: start: 20240930
  4. LAMPRENE [Suspect]
     Active Substance: CLOFAZIMINE
     Dosage: 100 MG, QD
     Route: 048
     Dates: start: 20241107
  5. LAMPRENE [Suspect]
     Active Substance: CLOFAZIMINE
     Dosage: 100 MG, QD
     Route: 048
     Dates: start: 20241208
  6. IMIPENEM [Suspect]
     Active Substance: IMIPENEM
     Indication: Mycobacterial infection
     Dosage: 1000 MG
     Route: 041
     Dates: start: 20240418
  7. IMIPENEM [Suspect]
     Active Substance: IMIPENEM
     Dosage: 1000 MG
     Route: 041
     Dates: start: 20240819
  8. IMIPENEM [Suspect]
     Active Substance: IMIPENEM
     Dosage: 1000 MG
     Route: 041
     Dates: start: 20240930
  9. AMIKACIN [Suspect]
     Active Substance: AMIKACIN
     Indication: Mycobacterial infection
     Dosage: 900 MG, EVERY MONDAY, WEDNESDAY, FRIDAY.
     Route: 042
     Dates: start: 20240523
  10. AMIKACIN [Suspect]
     Active Substance: AMIKACIN
     Dosage: 900 MG
     Route: 042
     Dates: start: 20240819
  11. AMIKACIN [Suspect]
     Active Substance: AMIKACIN
     Dosage: 900 MG
     Route: 042
     Dates: start: 20240930
  12. AMIKACIN [Suspect]
     Active Substance: AMIKACIN
     Dosage: 900 MG
     Route: 041
     Dates: start: 20241106
  13. LASIX [Suspect]
     Active Substance: FUROSEMIDE
     Indication: Hypertension
     Dosage: 40 MG
     Route: 048
     Dates: start: 20240507, end: 20241208
  14. PROPRANOLOL HYDROCHLORIDE [Concomitant]
     Active Substance: PROPRANOLOL HYDROCHLORIDE
     Indication: Hypertension
     Dosage: 20 MG, BID
     Route: 048
     Dates: start: 20200705
  15. OMADACYCLINE [Concomitant]
     Active Substance: OMADACYCLINE
     Indication: Mycobacterial infection
     Dosage: 300 MG, QD
     Route: 048
     Dates: start: 20240419
  16. OMADACYCLINE [Concomitant]
     Active Substance: OMADACYCLINE
     Dosage: 300 MG, QD
     Route: 048
     Dates: start: 202408
  17. OMADACYCLINE [Concomitant]
     Active Substance: OMADACYCLINE
     Dosage: 300 MG, QD
     Route: 048
     Dates: start: 20240930
  18. BUPROPION HYDROCHLORIDE [Concomitant]
     Active Substance: BUPROPION HYDROCHLORIDE
     Indication: Depression
     Dosage: 300 MG, QD
     Route: 048
     Dates: start: 20240605
  19. BUPROPION HYDROCHLORIDE [Concomitant]
     Active Substance: BUPROPION HYDROCHLORIDE
     Dosage: 300 MG, QD
     Route: 048
     Dates: start: 20240819
  20. ACETAMINOPHEN [Concomitant]
     Active Substance: ACETAMINOPHEN
     Indication: Pain
     Dosage: 2 DOSAGE FORM, PRN
     Route: 048
     Dates: start: 20240704
  21. BENADRYL [Concomitant]
     Active Substance: DIPHENHYDRAMINE HYDROCHLORIDE
     Indication: Pruritus
     Dosage: 50 MG, PRN
     Route: 048
     Dates: start: 20240604
  22. CETIRIZINE [Concomitant]
     Active Substance: CETIRIZINE HYDROCHLORIDE
     Indication: Seasonal allergy
     Dosage: 10 MG, QD
     Route: 048
     Dates: start: 20240507
  23. FERROUS SULFATE [Concomitant]
     Active Substance: FERROUS SULFATE
     Indication: Anaemia
     Dosage: 325 MG, BID
     Route: 048
     Dates: start: 20240705
  24. FUROSEMIDE [Concomitant]
     Active Substance: FUROSEMIDE
     Indication: Hypertension
     Dosage: 40 MG, QD
     Route: 048
     Dates: start: 20240507
  25. GABAPENTIN [Concomitant]
     Active Substance: GABAPENTIN
     Indication: Pain
     Dosage: 2 DOSAGE FORM, Q8H
     Route: 065
     Dates: start: 20240607
  26. HYDROCHLOROTHIAZIDE [Concomitant]
     Active Substance: HYDROCHLOROTHIAZIDE
     Indication: Hypertension
     Dosage: 25 MG, QD
     Route: 048
     Dates: start: 20240507
  27. HYDROCORTISONE [Concomitant]
     Active Substance: HYDROCORTISONE
     Indication: Rash papular
     Dosage: UNK, BID, TOPICAL TO LEG SPOT
     Route: 050
     Dates: start: 20240716
  28. MELATONIN [Concomitant]
     Active Substance: MELATONIN
     Indication: Insomnia
     Dosage: 2 DOSAGE FORM, Q24H
     Route: 048
     Dates: start: 20240713
  29. MILK OF MAGNESIA [Concomitant]
     Active Substance: MAGNESIUM HYDROXIDE
     Indication: Prophylaxis
     Dosage: 30 ML, Q24H
     Route: 048
     Dates: start: 20240507
  30. MONTELUKAST SODIUM [Concomitant]
     Active Substance: MONTELUKAST\MONTELUKAST SODIUM
     Indication: Seasonal allergy
     Dosage: 10 MG, QD
     Route: 048
     Dates: start: 20240507
  31. MONTELUKAST SODIUM [Concomitant]
     Active Substance: MONTELUKAST\MONTELUKAST SODIUM
     Indication: Asthma
  32. SODIUM CHLORIDE [Concomitant]
     Active Substance: SODIUM CHLORIDE
     Indication: Product used for unknown indication
     Dosage: 10 ML, Q SHIFT
     Route: 042
     Dates: start: 20240507
  33. SUCRALFATE [Concomitant]
     Active Substance: SUCRALFATE
     Indication: Gastrooesophageal reflux disease
     Dosage: 10 ML BEFORE MEALS
     Route: 048
     Dates: start: 20240820
  34. NYSTATIN [Concomitant]
     Active Substance: NYSTATIN
     Indication: Rash
     Dosage: UNK, BID, POWDER TO ABDOMEN FOLDS TOPICAL
     Route: 065
     Dates: start: 20240603
  35. OXYCODONE [Concomitant]
     Active Substance: OXYCODONE
     Indication: Pain
     Dosage: 10-325 MG, 1 TAB Q4H
     Route: 048
     Dates: start: 20240724
  36. OXYCODONE [Concomitant]
     Active Substance: OXYCODONE
     Dosage: 5-325 MG, 1 TAB Q4H
     Route: 048
     Dates: start: 20240725
  37. OXYCONTIN [Concomitant]
     Active Substance: OXYCODONE HYDROCHLORIDE
     Indication: Pain
     Dosage: 10 MG, Q12H PRN
     Route: 048
     Dates: start: 20240607
  38. POTASSIUM CHLORIDE [Concomitant]
     Active Substance: POTASSIUM CHLORIDE
     Indication: Hypokalaemia
     Dosage: 1 DOSAGE FORM, QD (20 MEQ)
     Route: 048
     Dates: start: 20240717
  39. PANTOPRAZOLE [Concomitant]
     Active Substance: PANTOPRAZOLE
     Indication: Gastrooesophageal reflux disease
     Dosage: 40 MG, QD
     Route: 048
     Dates: start: 20240307
  40. PROVENTIL HFA [Concomitant]
     Active Substance: ALBUTEROL SULFATE
     Indication: Asthma
     Dosage: 2 PUFFS, Q6H PRN
     Route: 055
     Dates: start: 20240507
  41. PROVENTIL HFA [Concomitant]
     Active Substance: ALBUTEROL SULFATE
     Indication: Chronic obstructive pulmonary disease
  42. PROVENTIL HFA [Concomitant]
     Active Substance: ALBUTEROL SULFATE
     Indication: Wheezing
  43. SACCHAROMYCES CEREVISIAE [Concomitant]
     Active Substance: SACCHAROMYCES CEREVISIAE
     Indication: Probiotic therapy
     Dosage: 250 MG, QD
     Route: 048
     Dates: start: 20240507
  44. XANAX [Concomitant]
     Active Substance: ALPRAZOLAM
     Indication: Anxiety
     Dosage: 0.25 MG, Q12H PRN
     Route: 048
     Dates: start: 20240715

REACTIONS (8)
  - Neutropenia [Recovering/Resolving]
  - Skin necrosis [Recovering/Resolving]
  - Acute kidney injury [Not Recovered/Not Resolved]
  - Hypokalaemia [Not Recovered/Not Resolved]
  - Tooth discolouration [Not Recovered/Not Resolved]
  - Impaired healing [Unknown]
  - Hypertransaminasaemia [Not Recovered/Not Resolved]
  - Skin hyperpigmentation [Not Recovered/Not Resolved]

NARRATIVE: CASE EVENT DATE: 20240801
